FAERS Safety Report 8622013 (Version 5)
Quarter: 2014Q3

REPORT INFORMATION
  Report Type: Spontaneous
  Country: US (occurrence: US)
  Receive Date: 20120601
  Receipt Date: 20140731
  Transmission Date: 20150326
  Serious: Yes (Hospitalization, Disabling, Other)
  Sender: FDA-Public Use
  Company Number: US-009507513-2012SP005876

PATIENT
  Sex: Female
  Weight: 88.45 kg

DRUGS (1)
  1. NUVARING [Suspect]
     Active Substance: ETHINYL ESTRADIOL\ETONOGESTREL
     Indication: CONTRACEPTION
     Route: 067
     Dates: start: 200804, end: 200902

REACTIONS (17)
  - Pneumonia [Unknown]
  - Iron deficiency [Unknown]
  - Pharyngitis streptococcal [Unknown]
  - Pulmonary hypertension [Unknown]
  - Escherichia urinary tract infection [Unknown]
  - Vitamin B12 deficiency [Unknown]
  - Thrombosis [Unknown]
  - Cardiac disorder [Unknown]
  - Anaemia [Unknown]
  - Pain [Unknown]
  - Infection [Unknown]
  - Systemic lupus erythematosus [Unknown]
  - Influenza like illness [Recovering/Resolving]
  - Undifferentiated connective tissue disease [Not Recovered/Not Resolved]
  - Pulmonary embolism [Recovered/Resolved]
  - Mouth ulceration [Unknown]
  - Folate deficiency [Unknown]

NARRATIVE: CASE EVENT DATE: 2009
